FAERS Safety Report 13054379 (Version 1)
Quarter: 2016Q4

REPORT INFORMATION
  Report Type: Spontaneous
  Country: GB (occurrence: GB)
  Receive Date: 20161222
  Receipt Date: 20161222
  Transmission Date: 20170207
  Serious: Yes (Other)
  Sender: FDA-Public Use
  Company Number: GB-PFIZER INC-2016589293

PATIENT
  Age: 45 Year
  Sex: Female
  Weight: 64 kg

DRUGS (1)
  1. CHAMPIX [Suspect]
     Active Substance: VARENICLINE TARTRATE
     Indication: SMOKING CESSATION THERAPY
     Dosage: 0.5 MG, UNK
     Route: 048
     Dates: start: 20161121

REACTIONS (7)
  - Dyspnoea [Recovered/Resolved]
  - Paraesthesia [Unknown]
  - Chest discomfort [Unknown]
  - Back pain [Unknown]
  - Throat tightness [Recovered/Resolved]
  - Blood pressure increased [Unknown]
  - Photopsia [Unknown]

NARRATIVE: CASE EVENT DATE: 201611
